FAERS Safety Report 14629341 (Version 1)
Quarter: 2018Q1

REPORT INFORMATION
  Report Type: Spontaneous
  Country: US (occurrence: US)
  Receive Date: 20180312
  Receipt Date: 20180312
  Transmission Date: 20180509
  Serious: Yes (Hospitalization)
  Sender: FDA-Public Use
  Company Number: None

PATIENT
  Age: 61 Year
  Sex: Female

DRUGS (7)
  1. PRAVACHOL [Concomitant]
     Active Substance: PRAVASTATIN SODIUM
     Dates: start: 20151106
  2. NAVANE [Concomitant]
     Active Substance: THIOTHIXENE
     Dates: start: 20050422
  3. GABAPENTIN. [Concomitant]
     Active Substance: GABAPENTIN
     Dates: start: 20160920
  4. SYNTHROID [Concomitant]
     Active Substance: LEVOTHYROXINE SODIUM
     Dates: start: 20060109
  5. INGREZZA [Suspect]
     Active Substance: VALBENAZINE
     Indication: TARDIVE DYSKINESIA
     Route: 048
     Dates: start: 20180205, end: 20180208
  6. ZYPREXA [Concomitant]
     Active Substance: OLANZAPINE
     Dates: start: 20160321
  7. DEPAKOTE ER [Concomitant]
     Active Substance: DIVALPROEX SODIUM
     Dates: start: 20160105

REACTIONS (4)
  - Immobile [None]
  - Parkinsonian gait [None]
  - Loss of personal independence in daily activities [None]
  - Restlessness [None]

NARRATIVE: CASE EVENT DATE: 20180209
